FAERS Safety Report 19689506 (Version 1)
Quarter: 2021Q3

REPORT INFORMATION
  Report Type: Spontaneous
  Country: US (occurrence: US)
  Receive Date: 20210812
  Receipt Date: 20210812
  Transmission Date: 20211014
  Serious: No
  Sender: FDA-Public Use
  Company Number: US-AJANTA PHARMA USA INC.-2114923

PATIENT
  Sex: Male

DRUGS (2)
  1. FENOFIBRATE (ANDA 210138) [Suspect]
     Active Substance: FENOFIBRATE
     Indication: PRODUCT USED FOR UNKNOWN INDICATION
  2. SIMVASTATIN. [Concomitant]
     Active Substance: SIMVASTATIN

REACTIONS (2)
  - Product taste abnormal [Unknown]
  - Dysgeusia [Unknown]
